FAERS Safety Report 5222467-1 (Version None)
Quarter: 2007Q1

REPORT INFORMATION
  Report Type: 
  Country: None (occurrence: None)
  Receive Date: 20070129
  Receipt Date: 20060606
  Transmission Date: 20070707
  Serious: No
  Sender: FDA-Public Use
  Company Number: US-BRISTOL-MYERS SQUIBB COMPANY-13403522

PATIENT

DRUGS (1)
  1. MESNEX [Suspect]

REACTIONS (1)
  - OVERDOSE [None]
